FAERS Safety Report 15869296 (Version 1)
Quarter: 2019Q1

REPORT INFORMATION
  Report Type: Spontaneous
  Country: US (occurrence: US)
  Receive Date: 20190125
  Receipt Date: 20190125
  Transmission Date: 20190417
  Serious: No
  Sender: FDA-Public Use
  Company Number: US-CYCLE PHARMACEUTICALS LTD-2019-CYC-000002

PATIENT
  Sex: Female

DRUGS (1)
  1. NITYR [Suspect]
     Active Substance: NITISINONE
     Indication: TYROSINAEMIA
     Dosage: 40 MG, BID
     Dates: start: 20181002

REACTIONS (1)
  - Gastrooesophageal reflux disease [Unknown]
